FAERS Safety Report 4490774-6 (Version None)
Quarter: 2004Q4

REPORT INFORMATION
  Report Type: 
  Country: None (occurrence: None)
  Receive Date: 20041025
  Receipt Date: 20041014
  Transmission Date: 20050328
  Serious: Yes (Other)
  Sender: FDA-Public Use
  Company Number: CHNY2004JP01410

PATIENT
  Age: 47 Year
  Sex: Male

DRUGS (5)
  1. NICOTINE [Suspect]
     Indication: SMOKING CESSATION THERAPY
     Dosage: TRANSDERMAL
     Route: 062
     Dates: start: 20040722
  2. URALIT (SOLIDAGO VIRGAUREA, RUBIA TINCTORUM, MAGNESIUM PHOSPHATE, EQUI [Concomitant]
  3. NEO-LOTAN (LOSARTAN POTASSIUM) [Concomitant]
  4. NORVASC [Concomitant]
  5. DOXAZOSIN MESYLATE [Concomitant]

REACTIONS (3)
  - ACETABULUM FRACTURE [None]
  - PAIN [None]
  - SKIN WARM [None]
